FAERS Safety Report 17478052 (Version 1)
Quarter: 2020Q1

REPORT INFORMATION
  Report Type: Spontaneous
  Country: NL (occurrence: RO)
  Receive Date: 20200228
  Receipt Date: 20200228
  Transmission Date: 20200409
  Serious: Yes (Other)
  Sender: FDA-Public Use
  Company Number: RO-FRESENIUS KABI-FK202001950

PATIENT
  Age: 61 Year
  Sex: Male

DRUGS (60)
  1. ZOLEDRONIC ACID (MANUFACTURER UNKNOWN) [Suspect]
     Active Substance: ZOLEDRONIC ACID
     Route: 042
     Dates: start: 201505
  2. ZOLEDRONIC ACID (MANUFACTURER UNKNOWN) [Suspect]
     Active Substance: ZOLEDRONIC ACID
     Route: 042
     Dates: start: 201412
  3. ZOLEDRONIC ACID (MANUFACTURER UNKNOWN) [Suspect]
     Active Substance: ZOLEDRONIC ACID
     Dosage: 4 MG, ONCE DAILY (3 MONTHS)
     Route: 042
     Dates: start: 201903
  4. ZOLEDRONIC ACID (MANUFACTURER UNKNOWN) [Suspect]
     Active Substance: ZOLEDRONIC ACID
     Dosage: 4 MG, ONCE DAILY (3 MONTHS)
     Route: 042
     Dates: start: 201707
  5. ZOLEDRONIC ACID (MANUFACTURER UNKNOWN) [Suspect]
     Active Substance: ZOLEDRONIC ACID
     Dosage: 4 MG, ONCE DAILY (3 MONTHS)
     Route: 042
     Dates: start: 201707
  6. ZOLEDRONIC ACID (MANUFACTURER UNKNOWN) [Suspect]
     Active Substance: ZOLEDRONIC ACID
     Route: 042
     Dates: start: 201412
  7. LEUPRORELIN ACETATE [Suspect]
     Active Substance: LEUPROLIDE ACETATE
     Dosage: 22.5 MG, EVERY 3 MONTHS
     Route: 065
     Dates: start: 201707
  8. LEUPRORELIN ACETATE [Suspect]
     Active Substance: LEUPROLIDE ACETATE
     Dosage: 22.5 MG, EVERY 3 MONTHS
     Route: 065
     Dates: start: 201412
  9. LEUPRORELIN ACETATE [Suspect]
     Active Substance: LEUPROLIDE ACETATE
     Dosage: 22.5 MG, EVERY 3 MONTHS
     Route: 065
     Dates: start: 201408
  10. LEUPRORELIN ACETATE [Suspect]
     Active Substance: LEUPROLIDE ACETATE
     Dosage: 22.5 MG, EVERY 3 MONTHS
     Route: 065
     Dates: start: 201903
  11. DOCETAXEL. [Concomitant]
     Active Substance: DOCETAXEL
     Dosage: UNK, CYCLIC (6 CYCLES)
     Dates: start: 201412
  12. ZOLEDRONIC ACID (MANUFACTURER UNKNOWN) [Suspect]
     Active Substance: ZOLEDRONIC ACID
     Dosage: 4 MG, ONCE DAILY (3 MONTHS)
     Route: 042
     Dates: start: 201707
  13. ZOLEDRONIC ACID (MANUFACTURER UNKNOWN) [Suspect]
     Active Substance: ZOLEDRONIC ACID
     Dosage: 4 MG, ONCE DAILY (3 MONTHS)
     Route: 042
     Dates: start: 201707
  14. ZOLEDRONIC ACID (MANUFACTURER UNKNOWN) [Suspect]
     Active Substance: ZOLEDRONIC ACID
     Dosage: 4 MG, ONCE DAILY (3 MONTHS)
     Route: 042
     Dates: start: 201903
  15. ZOLEDRONIC ACID (MANUFACTURER UNKNOWN) [Suspect]
     Active Substance: ZOLEDRONIC ACID
     Route: 042
     Dates: start: 201505
  16. ZOLEDRONIC ACID (MANUFACTURER UNKNOWN) [Suspect]
     Active Substance: ZOLEDRONIC ACID
     Dosage: 4 MG, ONCE DAILY (3 MONTHS)
     Route: 042
     Dates: start: 201707
  17. LEUPRORELIN ACETATE [Suspect]
     Active Substance: LEUPROLIDE ACETATE
     Indication: PROSTATE CANCER
     Dosage: 22.5 MG, EVERY 3 MONTHS
     Route: 065
     Dates: start: 201412
  18. LEUPRORELIN ACETATE [Suspect]
     Active Substance: LEUPROLIDE ACETATE
     Dosage: 22.5 MG, EVERY 3 MONTHS
     Route: 065
     Dates: start: 201903
  19. LEUPRORELIN ACETATE [Suspect]
     Active Substance: LEUPROLIDE ACETATE
     Dosage: 22.5 MG, EVERY 3 MONTHS
     Route: 065
     Dates: start: 201408
  20. ENZALUTAMIDE [Suspect]
     Active Substance: ENZALUTAMIDE
     Indication: PROSTATE CANCER
     Route: 048
     Dates: start: 201707
  21. DOCETAXEL. [Concomitant]
     Active Substance: DOCETAXEL
     Dosage: UNK, CYCLIC (6 CYCLES)
     Dates: start: 201412
  22. DOCETAXEL. [Concomitant]
     Active Substance: DOCETAXEL
     Dosage: 75 MG, UNKNOWN FREQ. (/MP PIV Z1 AT 21 DAYS)
     Dates: start: 201408
  23. ZOLEDRONIC ACID (MANUFACTURER UNKNOWN) [Suspect]
     Active Substance: ZOLEDRONIC ACID
     Indication: PROSTATE CANCER
     Dosage: 4 MG, ONCE DAILY (AT 21 DAYS)
     Route: 042
     Dates: start: 201408
  24. LEUPRORELIN ACETATE [Suspect]
     Active Substance: LEUPROLIDE ACETATE
     Dosage: 22.5 MG, EVERY 3 MONTHS
     Route: 065
     Dates: start: 201507
  25. LEUPRORELIN ACETATE [Suspect]
     Active Substance: LEUPROLIDE ACETATE
     Dosage: 22.5 MG, EVERY 3 MONTHS
     Route: 065
     Dates: start: 201412
  26. LEUPRORELIN ACETATE [Suspect]
     Active Substance: LEUPROLIDE ACETATE
     Dosage: 22.5 MG, EVERY 3 MONTHS
     Route: 065
     Dates: start: 201412
  27. LEUPRORELIN ACETATE [Suspect]
     Active Substance: LEUPROLIDE ACETATE
     Dosage: 22.5 MG, EVERY 3 MONTHS
     Route: 065
     Dates: start: 201408
  28. LEUPRORELIN ACETATE [Suspect]
     Active Substance: LEUPROLIDE ACETATE
     Dosage: 22.5 MG, EVERY 3 MONTHS
     Route: 065
     Dates: start: 201507
  29. BICALUTAMIDE. [Concomitant]
     Active Substance: BICALUTAMIDE
     Dosage: 50 MG, UNKNOWN FREQ. (FOR 7 DAYS)
     Dates: start: 201408
  30. ZOLEDRONIC ACID (MANUFACTURER UNKNOWN) [Suspect]
     Active Substance: ZOLEDRONIC ACID
     Dosage: 4 MG, ONCE DAILY (3 MONTHS)
     Route: 042
     Dates: start: 201903
  31. ZOLEDRONIC ACID (MANUFACTURER UNKNOWN) [Suspect]
     Active Substance: ZOLEDRONIC ACID
     Route: 042
     Dates: start: 201412
  32. ZOLEDRONIC ACID (MANUFACTURER UNKNOWN) [Suspect]
     Active Substance: ZOLEDRONIC ACID
     Dosage: 4 MG, ONCE DAILY (AT 21 DAYS)
     Route: 042
     Dates: start: 201408
  33. LEUPRORELIN ACETATE [Suspect]
     Active Substance: LEUPROLIDE ACETATE
     Dosage: 22.5 MG, EVERY 3 MONTHS
     Route: 065
     Dates: start: 201412
  34. PREDNISONE. [Concomitant]
     Active Substance: PREDNISONE
     Indication: PRODUCT USED FOR UNKNOWN INDICATION
     Dosage: 10 MG, TWICE DAILY (2X5 MG/DAY)
     Route: 065
     Dates: start: 201408
  35. ZOLEDRONIC ACID (MANUFACTURER UNKNOWN) [Suspect]
     Active Substance: ZOLEDRONIC ACID
     Route: 042
     Dates: start: 201505
  36. ZOLEDRONIC ACID (MANUFACTURER UNKNOWN) [Suspect]
     Active Substance: ZOLEDRONIC ACID
     Dosage: 4 MG, ONCE DAILY (3 MONTHS)
     Route: 042
     Dates: start: 201903
  37. LEUPRORELIN ACETATE [Suspect]
     Active Substance: LEUPROLIDE ACETATE
     Dosage: 22.5 MG, EVERY 3 MONTHS
     Route: 065
     Dates: start: 201408
  38. LEUPRORELIN ACETATE [Suspect]
     Active Substance: LEUPROLIDE ACETATE
     Dosage: 22.5 MG, EVERY 3 MONTHS
     Route: 065
     Dates: start: 201903
  39. LEUPRORELIN ACETATE [Suspect]
     Active Substance: LEUPROLIDE ACETATE
     Dosage: 22.5 MG, EVERY 3 MONTHS
     Route: 065
     Dates: start: 201707
  40. LEUPRORELIN ACETATE [Suspect]
     Active Substance: LEUPROLIDE ACETATE
     Dosage: 22.5 MG, EVERY 3 MONTHS
     Route: 065
     Dates: start: 201903
  41. BICALUTAMIDE. [Concomitant]
     Active Substance: BICALUTAMIDE
     Dosage: 50 MG, UNKNOWN FREQ. (FOR 7 DAYS)
     Dates: start: 201408
  42. ZOLEDRONIC ACID (MANUFACTURER UNKNOWN) [Suspect]
     Active Substance: ZOLEDRONIC ACID
     Dosage: 4 MG, ONCE DAILY (AT 21 DAYS)
     Route: 042
     Dates: start: 201408
  43. ZOLEDRONIC ACID (MANUFACTURER UNKNOWN) [Suspect]
     Active Substance: ZOLEDRONIC ACID
     Route: 042
     Dates: start: 201505
  44. LEUPRORELIN ACETATE [Suspect]
     Active Substance: LEUPROLIDE ACETATE
     Dosage: 22.5 MG, EVERY 3 MONTHS
     Route: 065
     Dates: start: 201903
  45. LEUPRORELIN ACETATE [Suspect]
     Active Substance: LEUPROLIDE ACETATE
     Dosage: 22.5 MG, EVERY 3 MONTHS
     Route: 065
     Dates: start: 201408
  46. BICALUTAMIDE. [Concomitant]
     Active Substance: BICALUTAMIDE
     Dates: start: 201603
  47. DOCETAXEL. [Concomitant]
     Active Substance: DOCETAXEL
     Indication: CHEMOTHERAPY
     Dosage: 75 MG, UNKNOWN FREQ. (/MP PIV Z1 AT 21 DAYS)
     Route: 065
     Dates: start: 201408
  48. ZOLEDRONIC ACID (MANUFACTURER UNKNOWN) [Suspect]
     Active Substance: ZOLEDRONIC ACID
     Route: 042
     Dates: start: 201412
  49. ZOLEDRONIC ACID (MANUFACTURER UNKNOWN) [Suspect]
     Active Substance: ZOLEDRONIC ACID
     Dosage: 4 MG, ONCE DAILY (AT 21 DAYS)
     Route: 042
     Dates: start: 201408
  50. LEUPRORELIN ACETATE [Suspect]
     Active Substance: LEUPROLIDE ACETATE
     Dosage: 22.5 MG, EVERY 3 MONTHS
     Route: 065
     Dates: start: 201507
  51. LEUPRORELIN ACETATE [Suspect]
     Active Substance: LEUPROLIDE ACETATE
     Dosage: 22.5 MG, EVERY 3 MONTHS
     Route: 065
     Dates: start: 201707
  52. ZOLEDRONIC ACID (MANUFACTURER UNKNOWN) [Suspect]
     Active Substance: ZOLEDRONIC ACID
     Route: 042
     Dates: start: 201505
  53. ZOLEDRONIC ACID (MANUFACTURER UNKNOWN) [Suspect]
     Active Substance: ZOLEDRONIC ACID
     Dosage: 4 MG, ONCE DAILY (AT 21 DAYS)
     Route: 042
     Dates: start: 201408
  54. ZOLEDRONIC ACID (MANUFACTURER UNKNOWN) [Suspect]
     Active Substance: ZOLEDRONIC ACID
     Route: 042
     Dates: start: 201412
  55. ZOLEDRONIC ACID (MANUFACTURER UNKNOWN) [Suspect]
     Active Substance: ZOLEDRONIC ACID
     Dosage: 4 MG, ONCE DAILY (3 MONTHS)
     Route: 042
     Dates: start: 201903
  56. LEUPRORELIN ACETATE [Suspect]
     Active Substance: LEUPROLIDE ACETATE
     Dosage: 22.5 MG, EVERY 3 MONTHS
     Route: 065
     Dates: start: 201707
  57. LEUPRORELIN ACETATE [Suspect]
     Active Substance: LEUPROLIDE ACETATE
     Dosage: 22.5 MG, EVERY 3 MONTHS
     Route: 065
     Dates: start: 201507
  58. LEUPRORELIN ACETATE [Suspect]
     Active Substance: LEUPROLIDE ACETATE
     Dosage: 22.5 MG, EVERY 3 MONTHS
     Route: 065
     Dates: start: 201507
  59. LEUPRORELIN ACETATE [Suspect]
     Active Substance: LEUPROLIDE ACETATE
     Dosage: 22.5 MG, EVERY 3 MONTHS
     Route: 065
     Dates: start: 201707
  60. BICALUTAMIDE. [Concomitant]
     Active Substance: BICALUTAMIDE
     Indication: PRODUCT USED FOR UNKNOWN INDICATION
     Route: 065
     Dates: start: 201603

REACTIONS (4)
  - Transitional cell carcinoma [Unknown]
  - Neuropathy peripheral [Unknown]
  - Asthenia [Unknown]
  - Metastases to pleura [Unknown]

NARRATIVE: CASE EVENT DATE: 201412
